FAERS Safety Report 7903653 (Version 8)
Quarter: 2015Q2

REPORT INFORMATION
  Report Type: Report from Study
  Country: GB (occurrence: GB)
  Receive Date: 20110419
  Receipt Date: 20150413
  Transmission Date: 20150821
  Serious: Yes (Hospitalization, Other)
  Sender: FDA-Public Use
  Company Number: GB-AMGEN-GBRCT2011020079

PATIENT
  Age: 29 Year
  Sex: Male
  Weight: 79.7 kg

DRUGS (4)
  1. ETANERCEPT [Suspect]
     Active Substance: ETANERCEPT
     Dosage: 50 MG, QWK
     Route: 065
     Dates: start: 20110521
  2. METHOTREXATE [Concomitant]
     Active Substance: METHOTREXATE
     Dosage: UNK
     Dates: start: 20080122
  3. FOLIC ACID. [Concomitant]
     Active Substance: FOLIC ACID
     Dosage: UNK
     Dates: start: 20080122
  4. ETANERCEPT [Suspect]
     Active Substance: ETANERCEPT
     Indication: PSORIASIS
     Dosage: 50 MG, QWK
     Route: 058
     Dates: start: 20100804, end: 20110202

REACTIONS (6)
  - Rash pruritic [Unknown]
  - Cellulitis [Recovered/Resolved]
  - Postoperative wound infection [Unknown]
  - Excoriation [Unknown]
  - Lymphadenopathy [Unknown]
  - Inguinal mass [Unknown]

NARRATIVE: CASE EVENT DATE: 20110202
